FAERS Safety Report 20505521 (Version 1)
Quarter: 2022Q1

REPORT INFORMATION
  Report Type: Spontaneous
  Country: CN (occurrence: CN)
  Receive Date: 20220223
  Receipt Date: 20220223
  Transmission Date: 20220423
  Serious: Yes (Other)
  Sender: FDA-Public Use
  Company Number: CN-STRIDES ARCOLAB LIMITED-2022SP001650

PATIENT
  Sex: Female

DRUGS (29)
  1. PREDNISOLONE [Suspect]
     Active Substance: PREDNISOLONE
     Indication: Acute undifferentiated leukaemia
     Dosage: 30 MILLIGRAM/SQ. METER, PER DAY FROM DAY 1-5; INDUCTION PHASE FOR 5 WEEKS
     Route: 048
  2. PREDNISOLONE [Suspect]
     Active Substance: PREDNISOLONE
     Dosage: 60 MILLIGRAM/SQ. METER, PER DAY  FROM DAY 6-10; INDUCTION PHASE FOR 5 WEEKS
     Route: 048
  3. PREDNISOLONE [Suspect]
     Active Substance: PREDNISOLONE
     Dosage: 48 MILLIGRAM/SQ. METER, PER DAY FROM DAY 11-29; INDUCTION PHASE FOR 5 WEEKS
     Route: 048
  4. PREDNISOLONE [Suspect]
     Active Substance: PREDNISOLONE
     Dosage: 25 MILLIGRAM/SQ. METER, PER DAY FROM DAY 30-31; INDUCTION PHASE FOR 5 WEEKS
     Route: 048
  5. PREDNISOLONE [Suspect]
     Active Substance: PREDNISOLONE
     Dosage: 12.5 MILLIGRAM/SQ. METER, PER DAY FROM DAY 32-33; INDUCTION PHASE FOR 5 WEEKS
     Route: 048
  6. PREDNISOLONE [Suspect]
     Active Substance: PREDNISOLONE
     Dosage: 6 MILLIGRAM/SQ. METER, PER DAY ON DAY 34; INDUCTION PHASE FOR 5 WEEKS
     Route: 048
  7. PREDNISOLONE [Suspect]
     Active Substance: PREDNISOLONE
     Dosage: UNK, ONE WEEK OF DAILY SYSTEMIC
     Route: 065
  8. PREDNISOLONE [Suspect]
     Active Substance: PREDNISOLONE
     Dosage: UNK
     Route: 065
  9. DEXAMETHASONE [Suspect]
     Active Substance: DEXAMETHASONE
     Indication: Acute undifferentiated leukaemia
     Dosage: UNK
     Route: 037
  10. METHOTREXATE [Suspect]
     Active Substance: METHOTREXATE
     Indication: Acute undifferentiated leukaemia
     Dosage: 3750 MILLIGRAM/SQ. METER, AS 24 HOUR INFUSION ON DAY 1, SCHEDULED FOR 5 CYCLES
     Route: 042
  11. METHOTREXATE [Suspect]
     Active Substance: METHOTREXATE
     Dosage: UNK, AT THE END OF THE 24 H METHOTREXATE INFUSION
     Route: 037
  12. METHOTREXATE [Suspect]
     Active Substance: METHOTREXATE
     Dosage: UNK, END OF THE FOURTH HIGH DOSE
     Route: 065
  13. CYCLOPHOSPHAMIDE [Suspect]
     Active Substance: CYCLOPHOSPHAMIDE
     Indication: Acute undifferentiated leukaemia
     Dosage: 200 MILLIGRAM/SQ. METER, PER DAY FROM DAY 2-3; INDUCTION PHASE FOR 5 WEEKS
     Route: 042
  14. CYCLOPHOSPHAMIDE [Suspect]
     Active Substance: CYCLOPHOSPHAMIDE
     Dosage: 750 MILLIGRAM/SQ. METER, PER DAY ON DAY 1 (CAM1); FOR 1 WEEK
     Route: 042
  15. CYCLOPHOSPHAMIDE [Suspect]
     Active Substance: CYCLOPHOSPHAMIDE
     Dosage: 750 MILLIGRAM/SQ. METER, PER DAY ON DAY 1 (CAM2)
     Route: 042
  16. CYTARABINE [Suspect]
     Active Substance: CYTARABINE
     Indication: Acute undifferentiated leukaemia
     Dosage: 150 MILLIGRAM/SQ. METER, BID FROM DAY 5-11; INDUCTION PHASE FOR 5 WEEKS
     Route: 042
  17. CYTARABINE [Suspect]
     Active Substance: CYTARABINE
     Dosage: 75 MILLIGRAM/SQ. METER, BID FROM DAY 1-8; CAM1; FOR 1 WEEK
     Route: 042
  18. CYTARABINE [Suspect]
     Active Substance: CYTARABINE
     Dosage: 75 MILLIGRAM/SQ. METER, BID FROM DAY 1-10; CAM2
     Route: 042
  19. CYTARABINE [Suspect]
     Active Substance: CYTARABINE
     Dosage: 375 MILLIGRAM/SQ. METER, PER DAY ON DAY 4
     Route: 042
  20. CYTARABINE [Suspect]
     Active Substance: CYTARABINE
     Dosage: UNK
     Route: 037
  21. DAUNORUBICIN [Suspect]
     Active Substance: DAUNORUBICIN
     Indication: Acute undifferentiated leukaemia
     Dosage: 30 MILLIGRAM/SQ. METER, IN 60 MINUTES; ON DAY 8 AND 15; INDUCTION PHASE FOR 5 WEEKS
     Route: 042
  22. DAUNORUBICIN [Suspect]
     Active Substance: DAUNORUBICIN
     Dosage: UNK
     Route: 065
  23. PEGASPARGASE [Suspect]
     Active Substance: PEGASPARGASE
     Indication: Acute undifferentiated leukaemia
     Dosage: 2000 IU/M2; ON DAY 9; INDUCTION PHASE FOR 5 WEEKS
     Route: 030
  24. MERCAPTOPURINE [Suspect]
     Active Substance: MERCAPTOPURINE
     Indication: Acute undifferentiated leukaemia
     Dosage: 50 MILLIGRAM/SQ. METER, PER DAY FROM DAY 1-8 (CAM1); FOR 1 WEEK
     Route: 048
  25. MERCAPTOPURINE [Suspect]
     Active Substance: MERCAPTOPURINE
     Dosage: 50 MILLIGRAM/SQ. METER, PER DAY FROM DAY 1-10 (CAM2)
     Route: 048
  26. MERCAPTOPURINE [Suspect]
     Active Substance: MERCAPTOPURINE
     Dosage: 40-60 MG/M2;FROM DAY 1-7
     Route: 048
  27. LEUCOVORIN [Suspect]
     Active Substance: LEUCOVORIN
     Indication: Product used for unknown indication
     Dosage: 15 MILLIGRAM/SQ. METER AT 42, 48, 54, 60, 66, 72 HOUR AFTER START OF METHOTREXATE
     Route: 042
  28. VINCRISTINE [Concomitant]
     Active Substance: VINCRISTINE
     Indication: Acute undifferentiated leukaemia
     Dosage: 1.5 MILLIGRAM/SQ. METER, ON DAYS 8,15 AND 22; INDUCTION PHASE FOR 5 WEEKS
     Route: 042
  29. VINCRISTINE [Concomitant]
     Active Substance: VINCRISTINE
     Dosage: UNK
     Route: 065

REACTIONS (2)
  - Diarrhoea [Unknown]
  - Rash [Unknown]
